FAERS Safety Report 9513483 (Version 1)
Quarter: 2013Q3

REPORT INFORMATION
  Report Type: Spontaneous
  Country: US (occurrence: US)
  Receive Date: 20130910
  Receipt Date: 20130910
  Transmission Date: 20140515
  Serious: No
  Sender: FDA-Public Use
  Company Number: US-TARO-2013P1005051

PATIENT
  Age: 71 Year
  Sex: Female
  Weight: 81.65 kg

DRUGS (7)
  1. WARFARIN SODIUM TABLETS USP 5MG [Suspect]
     Route: 048
     Dates: start: 201006, end: 201303
  2. WARFARIN SODIUM TABLETS USP 5MG [Suspect]
     Route: 048
     Dates: start: 201006, end: 201303
  3. WARFARIN SODIUM TABLETS USP 5MG [Suspect]
     Route: 048
     Dates: start: 201303, end: 201303
  4. WARFARIN SODIUM TABLETS USP 5MG [Suspect]
     Route: 048
     Dates: start: 201303, end: 20130417
  5. WARFARIN SODIUM TABLETS USP 5MG [Suspect]
     Route: 048
     Dates: start: 20130418
  6. SIMVASTATIN [Concomitant]
     Dates: start: 201006
  7. AZATHIOPRINE [Concomitant]
     Dates: start: 201006

REACTIONS (2)
  - International normalised ratio decreased [Not Recovered/Not Resolved]
  - Headache [Not Recovered/Not Resolved]
